FAERS Safety Report 7573743-9 (Version None)
Quarter: 2011Q2

REPORT INFORMATION
  Report Type: 
  Country: None (occurrence: None)
  Receive Date: 20110627
  Receipt Date: 20110621
  Transmission Date: 20111010
  Serious: Yes (Hospitalization)
  Sender: FDA-Public Use
  Company Number: JP-ABBOTT-11P-087-0732882-00

PATIENT
  Age: 3 Year
  Sex: Female
  Weight: 13.6 kg

DRUGS (8)
  1. ONON [Concomitant]
     Indication: ASTHMA
     Dosage: D
     Route: 048
     Dates: start: 20110607, end: 20110618
  2. ANTIBIOTICS-RESISTANT LACTIC ACID BACTERIAE [Concomitant]
     Indication: GASTROINTESTINAL DISORDER
     Route: 048
  3. BIOFERMIN R [Concomitant]
     Indication: GASTROINTESTINAL DISORDER
     Route: 048
     Dates: start: 20110607, end: 20110614
  4. HOKUNALIN [Concomitant]
     Indication: ASTHMA
     Route: 061
     Dates: start: 20110607, end: 20110614
  5. TRANSAMIN POWDER [Concomitant]
     Indication: PHARYNGITIS
     Route: 048
     Dates: start: 20110607, end: 20110614
  6. MUCODYNE-DS [Concomitant]
     Indication: PNEUMONIA
  7. CLARITHROMYCIN [Suspect]
     Indication: PNEUMONIA
     Route: 048
     Dates: start: 20110609, end: 20110609
  8. MUCODYNE-DS [Concomitant]
     Indication: BRONCHITIS
     Route: 048
     Dates: start: 20110607, end: 20110614

REACTIONS (2)
  - URTICARIA [None]
  - CONJUNCTIVAL HAEMORRHAGE [None]
